FAERS Safety Report 24614342 (Version 1)
Quarter: 2024Q4

REPORT INFORMATION
  Report Type: Spontaneous
  Country: RO (occurrence: RO)
  Receive Date: 20241113
  Receipt Date: 20241113
  Transmission Date: 20250115
  Serious: Yes (Death, Hospitalization, Other)
  Sender: ALEXION PHARMACEUTICALS
  Company Number: RO-AstraZeneca-CH-00720082A

PATIENT

DRUGS (4)
  1. DAPAGLIFLOZIN [Suspect]
     Active Substance: DAPAGLIFLOZIN
     Indication: Hypertrophic cardiomyopathy
  2. DAPAGLIFLOZIN [Suspect]
     Active Substance: DAPAGLIFLOZIN
  3. DAPAGLIFLOZIN [Suspect]
     Active Substance: DAPAGLIFLOZIN
  4. DAPAGLIFLOZIN [Suspect]
     Active Substance: DAPAGLIFLOZIN

REACTIONS (4)
  - Ketoacidosis [Unknown]
  - Hypoglycaemia [Unknown]
  - Cardiac arrest [Fatal]
  - Ventricular fibrillation [Fatal]
